FAERS Safety Report 9834690 (Version 11)
Quarter: 2015Q2

REPORT INFORMATION
  Report Type: Report from Study
  Country: FR (occurrence: FR)
  Receive Date: 20140122
  Receipt Date: 20150514
  Transmission Date: 20150821
  Serious: Yes (Hospitalization, Other)
  Sender: FDA-Public Use
  Company Number: FR-ROCHE-1306553

PATIENT
  Age: 93 Year
  Sex: Male
  Weight: 72 kg

DRUGS (21)
  1. VITABACT [Concomitant]
     Active Substance: PICLOXYDINE DIHYDROCHLORIDE
     Indication: PRURITUS
     Route: 065
     Dates: start: 20120801
  2. THIOCOLCHICOSIDE [Concomitant]
     Active Substance: THIOCOLCHICOSIDE
     Indication: MUSCLE SPASMS
     Route: 065
  3. FLUOROURACILE [Concomitant]
     Active Substance: FLUOROURACIL
     Indication: SQUAMOUS CELL CARCINOMA
     Dosage: DOSE: 1 APPLICATION
     Route: 065
     Dates: start: 20121106, end: 20130102
  4. GLIBENCLAMIDE [Concomitant]
     Active Substance: GLYBURIDE
     Indication: TYPE 2 DIABETES MELLITUS
     Route: 065
     Dates: start: 20121201
  5. AMLODIPINE [Concomitant]
     Active Substance: AMLODIPINE BESYLATE
     Indication: HYPERTENSION
     Route: 065
     Dates: start: 20120501
  6. KARDEGIC [Concomitant]
     Active Substance: ASPIRIN LYSINE
     Indication: MYOCARDIAL ISCHAEMIA
     Route: 065
     Dates: start: 20120201
  7. TRINITRINE [Concomitant]
     Active Substance: NITROGLYCERIN
     Indication: MYOCARDIAL ISCHAEMIA
     Route: 065
     Dates: start: 20120201
  8. COLTRAMYL [Concomitant]
     Active Substance: THIOCOLCHICOSIDE
     Indication: MUSCLE SPASMS
     Route: 065
     Dates: start: 20121008, end: 20121106
  9. NERISONE OILY CREAM [Concomitant]
     Indication: RASH
     Route: 065
     Dates: start: 20121005, end: 20121105
  10. VISMODEGIB [Suspect]
     Active Substance: VISMODEGIB
     Indication: BASAL CELL CARCINOMA
     Dosage: LAST DOSE PRIOR TO THE SAE:17/OCT/2013
     Route: 048
     Dates: start: 20120911, end: 20131017
  11. PRAVASTATIN [Concomitant]
     Active Substance: PRAVASTATIN\PRAVASTATIN SODIUM
     Indication: HYPERCHOLESTEROLAEMIA
     Route: 065
     Dates: start: 20120501
  12. VITABACT [Concomitant]
     Active Substance: PICLOXYDINE DIHYDROCHLORIDE
     Route: 065
     Dates: start: 20121123
  13. TOBREX [Concomitant]
     Active Substance: TOBRAMYCIN
     Indication: CONJUNCTIVITIS
     Route: 065
     Dates: start: 20130130, end: 20130207
  14. DOLIPRANE [Concomitant]
     Active Substance: ACETAMINOPHEN
     Indication: OSTEOARTHRITIS
     Route: 065
     Dates: start: 19900101
  15. PREVISCAN (FLUINDIONE) [Concomitant]
     Active Substance: FLUINDIONE
     Indication: ARRHYTHMIA
     Route: 065
     Dates: start: 20110801, end: 20131029
  16. NERISONE OILY CREAM [Concomitant]
     Route: 065
     Dates: start: 20121106, end: 20121203
  17. EFUDIX [Concomitant]
     Active Substance: FLUOROURACIL
     Indication: SQUAMOUS CELL CARCINOMA
     Route: 065
     Dates: start: 20121106, end: 20121203
  18. ALDALIX [Concomitant]
     Active Substance: FUROSEMIDE SODIUM\SPIRONOLACTONE
     Route: 065
     Dates: start: 20120501
  19. ACETYLCYSTEINE. [Concomitant]
     Active Substance: ACETYLCYSTEINE
     Indication: RESPIRATORY TRACT CONGESTION
     Route: 065
     Dates: start: 20120801
  20. COLTRAMYL [Concomitant]
     Active Substance: THIOCOLCHICOSIDE
     Dosage: DOSE: 4 TABLETS
     Route: 065
     Dates: start: 20130130
  21. DIFLUCORTOLONE [Concomitant]
     Active Substance: DIFLUCORTOLONE
     Indication: RASH
     Dosage: DOSE: 1 APPLICATION
     Route: 065
     Dates: start: 20121005, end: 20130102

REACTIONS (3)
  - Squamous cell carcinoma [Not Recovered/Not Resolved]
  - Physical disability [Recovered/Resolved with Sequelae]
  - Monarthritis [Recovered/Resolved with Sequelae]

NARRATIVE: CASE EVENT DATE: 20131017
